FAERS Safety Report 9713035 (Version 1)
Quarter: 2013Q4

REPORT INFORMATION
  Report Type: Spontaneous
  Country: US (occurrence: US)
  Receive Date: 20131126
  Receipt Date: 20131126
  Transmission Date: 20140711
  Serious: No
  Sender: FDA-Public Use
  Company Number: US-BRISTOL-MYERS SQUIBB COMPANY-19385178

PATIENT
  Age: 47 Year
  Sex: Male
  Weight: 126.98 kg

DRUGS (1)
  1. BYDUREON 2MG SUSPENSION [Suspect]
     Indication: TYPE 2 DIABETES MELLITUS
     Dates: start: 20130814

REACTIONS (4)
  - Abdominal pain [Unknown]
  - Contusion [Unknown]
  - Weight decreased [Unknown]
  - Decreased appetite [Unknown]
